FAERS Safety Report 14605268 (Version 2)
Quarter: 2018Q1

REPORT INFORMATION
  Report Type: Report from Study
  Country: DE (occurrence: DE)
  Receive Date: 20180306
  Receipt Date: 20180313
  Transmission Date: 20180509
  Serious: Yes (Hospitalization, Other)
  Sender: FDA-Public Use
  Company Number: DE-PFIZER INC-2018092023

PATIENT
  Sex: Male
  Weight: 55 kg

DRUGS (13)
  1. MORPHINE HYDROCHLORIDE [Suspect]
     Active Substance: MORPHINE HYDROCHLORIDE
     Dosage: 4 ML, AS NEEDED (IN ADDITION IF REQUIRED)
     Route: 042
     Dates: start: 20170729, end: 20170810
  2. NOVAMINSULFON [Suspect]
     Active Substance: METAMIZOLE
     Dosage: 120 GTT, 1X/DAY
     Route: 065
     Dates: start: 20170729, end: 20170810
  3. MORPHINE HYDROCHLORIDE [Suspect]
     Active Substance: MORPHINE HYDROCHLORIDE
     Dosage: 6 ML, 1 PER HOUR (Q1HR)
     Route: 042
     Dates: start: 20170729, end: 20170810
  4. DEKRISTOL [Concomitant]
     Active Substance: CHOLECALCIFEROL
     Dosage: UNK
  5. PANTOPRAZOLE [Suspect]
     Active Substance: PANTOPRAZOLE
     Dosage: 40 MG, 1X/DAY
     Route: 065
     Dates: start: 20170729, end: 20170810
  6. ZOLPIDEM [Suspect]
     Active Substance: ZOLPIDEM\ZOLPIDEM TARTRATE
     Dosage: 5 MG, UNK
     Route: 065
     Dates: start: 20170729, end: 20170810
  7. HUMIRA [Suspect]
     Active Substance: ADALIMUMAB
     Indication: PSORIASIS
     Dosage: 40 MG, MONTHLY
     Route: 058
     Dates: start: 20170801
  8. HUMIRA [Suspect]
     Active Substance: ADALIMUMAB
     Dosage: 40 MG, MONTHLY
     Route: 058
     Dates: end: 20170722
  9. TRAMAL [Suspect]
     Active Substance: TRAMADOL
     Dosage: 30 DF, 3X/DAY
     Route: 065
     Dates: start: 20170729, end: 20170810
  10. HUMIRA [Suspect]
     Active Substance: ADALIMUMAB
     Indication: PSORIASIS
     Dosage: UNK
     Route: 065
  11. TRAMAL LONG [Suspect]
     Active Substance: TRAMADOL
     Dosage: 200 MG, 1X/DAY
     Route: 065
     Dates: start: 20170729
  12. IBUPROFEN. [Concomitant]
     Active Substance: IBUPROFEN
     Dosage: UNK
  13. HUMIRA [Suspect]
     Active Substance: ADALIMUMAB
     Indication: HIDRADENITIS
     Dosage: 40 MG, MONTHLY
     Route: 058
     Dates: start: 20160412

REACTIONS (6)
  - Abscess [Recovering/Resolving]
  - Condition aggravated [Recovering/Resolving]
  - Psoriasis [Not Recovered/Not Resolved]
  - Condition aggravated [Not Recovered/Not Resolved]
  - Pneumothorax spontaneous [Recovered/Resolved]
  - Pneumothorax spontaneous [Recovered/Resolved]

NARRATIVE: CASE EVENT DATE: 20160501
